FAERS Safety Report 4976803-1 (Version None)
Quarter: 2006Q1

REPORT INFORMATION
  Report Type: 
  Country: None (occurrence: None)
  Receive Date: 20060221
  Receipt Date: 20050623
  Transmission Date: 20060701
  Serious: Yes (Hospitalization)
  Sender: FDA-Public Use
  Company Number: PHEH2005US07017

PATIENT
  Age: 50 Year
  Sex: Female
  Weight: 101.1 kg

DRUGS (6)
  1. DIOVAN [Suspect]
     Dosage: 80 MG QD ORAL
     Route: 048
     Dates: start: 20041001, end: 20041201
  2. AVAPRO [Suspect]
     Dosage: 150 MG, QD, ORAL
     Route: 048
     Dates: start: 20041201, end: 20050317
  3. ACTONEL [Concomitant]
  4. ZOLOFT [Concomitant]
  5. SINGULAIR [Concomitant]
  6. TRICOR [Concomitant]

REACTIONS (3)
  - PRURITUS [None]
  - UPPER RESPIRATORY TRACT INFECTION [None]
  - URTICARIA [None]
